FAERS Safety Report 24812853 (Version 1)
Quarter: 2025Q1

REPORT INFORMATION
  Report Type: Spontaneous
  Country: FR (occurrence: FR)
  Receive Date: 20250107
  Receipt Date: 20250107
  Transmission Date: 20250409
  Serious: Yes (Hospitalization, Other)
  Sender: AUROBINDO
  Company Number: FR-AFSSAPS-TS2024001655

PATIENT
  Age: 32 Year
  Sex: Female
  Weight: 84 kg

DRUGS (3)
  1. ACETAMINOPHEN [Suspect]
     Active Substance: ACETAMINOPHEN
     Indication: Intervertebral disc protrusion
     Route: 048
     Dates: start: 202409
  2. TERBINAFINE [Suspect]
     Active Substance: TERBINAFINE
     Indication: Onychomycosis
     Dosage: 1 DOSAGE FORM, ONCE A DAY
     Route: 061
  3. AMDINOCILLIN PIVOXIL [Suspect]
     Active Substance: AMDINOCILLIN PIVOXIL
     Indication: Urinary tract infection
     Dosage: 400 MILLIGRAM, TWO TIMES A DAY
     Route: 048
     Dates: start: 20241129, end: 20241203

REACTIONS (1)
  - Pancreatitis acute [Recovering/Resolving]

NARRATIVE: CASE EVENT DATE: 20241209
